FAERS Safety Report 7214124-7 (Version None)
Quarter: 2011Q1

REPORT INFORMATION
  Report Type: 
  Country: None (occurrence: None)
  Receive Date: 20110107
  Receipt Date: 20101230
  Transmission Date: 20110831
  Serious: Yes (Other)
  Sender: FDA-Public Use
  Company Number: US-SOLVAY-00211000015

PATIENT
  Age: 64 Year
  Sex: Male
  Weight: 68.181 kg

DRUGS (4)
  1. COZAAR [Concomitant]
     Indication: HYPERTENSION
     Dosage: DAILY DOSE:  UNKNOWN
     Route: 065
  2. ANDROGEL [Suspect]
     Indication: BLOOD TESTOSTERONE DECREASED
     Dosage: DAILY DOSE: 1 PACKET
     Route: 062
     Dates: start: 20030101, end: 20101101
  3. ANDROGEL [Suspect]
     Dosage: DAILY DOSE: 2 PACKETS
     Route: 062
     Dates: start: 20101101
  4. BONIVA [Suspect]
     Indication: OSTEOPENIA
     Dosage: DAILY DOSE:  UNKNOWN
     Route: 065
     Dates: end: 20070101

REACTIONS (4)
  - INSULIN-LIKE GROWTH FACTOR INCREASED [None]
  - OSTEOPOROSIS [None]
  - OSTEONECROSIS [None]
  - GINGIVAL DISORDER [None]
